FAERS Safety Report 9563384 (Version 3)
Quarter: 2014Q4

REPORT INFORMATION
  Report Type: Spontaneous
  Country: US (occurrence: US)
  Receive Date: 20130927
  Receipt Date: 20141014
  Transmission Date: 20150529
  Serious: Yes (Other)
  Sender: FDA-Public Use
  Company Number: US-ASTRAZENECA-2013SE70614

PATIENT
  Age: 46 Year
  Sex: Female
  Weight: 59 kg

DRUGS (14)
  1. PRILOSEC [Suspect]
     Active Substance: OMEPRAZOLE MAGNESIUM
     Indication: PNEUMONIA ASPIRATION
     Dosage: MERCK SHARP + DOME
     Route: 048
  2. PRILOSEC OTC [Suspect]
     Active Substance: OMEPRAZOLE MAGNESIUM
     Route: 048
  3. PRILOSEC [Suspect]
     Active Substance: OMEPRAZOLE MAGNESIUM
     Indication: GASTROOESOPHAGEAL REFLUX DISEASE
     Route: 048
  4. PRILOSEC [Suspect]
     Active Substance: OMEPRAZOLE MAGNESIUM
     Indication: GASTROOESOPHAGEAL REFLUX DISEASE
     Route: 048
  5. PRILOSEC [Suspect]
     Active Substance: OMEPRAZOLE MAGNESIUM
     Indication: GASTROOESOPHAGEAL REFLUX DISEASE
     Dosage: MERCK SHARP + DOME, 10 MG EVERY DAY
     Route: 048
  6. TRANZENE [Concomitant]
     Active Substance: CLORAZEPATE DIPOTASSIUM
     Indication: MUSCLE SPASMS
     Route: 048
  7. PRILOSEC [Suspect]
     Active Substance: OMEPRAZOLE MAGNESIUM
     Indication: PNEUMONIA ASPIRATION
     Dosage: MERCK SHARP + DOME, 10 MG EVERY DAY
     Route: 048
  8. PRILOSEC [Suspect]
     Active Substance: OMEPRAZOLE MAGNESIUM
     Indication: GASTROOESOPHAGEAL REFLUX DISEASE
     Dosage: MERCK SHARP + DOME
     Route: 048
  9. PRILOSEC [Suspect]
     Active Substance: OMEPRAZOLE MAGNESIUM
     Indication: PNEUMONIA ASPIRATION
     Dosage: MERCK SHARP + DOME, 10 MG EVERY DAY
     Route: 048
     Dates: start: 19980131
  10. PRILOSEC [Suspect]
     Active Substance: OMEPRAZOLE MAGNESIUM
     Indication: PNEUMONIA ASPIRATION
     Route: 048
  11. PRILOSEC [Suspect]
     Active Substance: OMEPRAZOLE MAGNESIUM
     Indication: GASTROOESOPHAGEAL REFLUX DISEASE
     Dosage: MERCK SHARP + DOME, 10 MG EVERY DAY
     Route: 048
  12. PRILOSEC [Suspect]
     Active Substance: OMEPRAZOLE MAGNESIUM
     Indication: GASTROOESOPHAGEAL REFLUX DISEASE
     Dosage: MERCK SHARP + DOME, 10 MG EVERY DAY
     Route: 048
     Dates: start: 19980131
  13. PRILOSEC [Suspect]
     Active Substance: OMEPRAZOLE MAGNESIUM
     Indication: GASTROOESOPHAGEAL REFLUX DISEASE
     Dosage: MERCK SHARP + DOME, 10 MG EVERY DAY
     Route: 048
     Dates: start: 19980131
  14. PRILOSEC [Suspect]
     Active Substance: OMEPRAZOLE MAGNESIUM
     Indication: GASTROOESOPHAGEAL REFLUX DISEASE
     Dosage: MERCK SHARP + DOME
     Route: 048

REACTIONS (10)
  - Intentional product misuse [Unknown]
  - Gastrointestinal tract irritation [Not Recovered/Not Resolved]
  - Cystitis [Unknown]
  - Urinary tract infection [Unknown]
  - Paralysis [Not Recovered/Not Resolved]
  - Pain in extremity [Unknown]
  - Kidney infection [Unknown]
  - Drug ineffective [Unknown]
  - Tremor [Unknown]
  - Abdominal pain upper [Not Recovered/Not Resolved]

NARRATIVE: CASE EVENT DATE: 1998
